FAERS Safety Report 4287292-7 (Version None)
Quarter: 2004Q1

REPORT INFORMATION
  Report Type: 
  Country: None (occurrence: None)
  Receive Date: 20040205
  Receipt Date: 20040123
  Transmission Date: 20041129
  Serious: Yes (Hospitalization, Other)
  Sender: FDA-Public Use
  Company Number: 2003122956

PATIENT
  Age: 13 Year
  Sex: Female
  Weight: 45.3597 kg

DRUGS (6)
  1. ZOLOFT [Suspect]
     Indication: ANXIETY
     Dosage: 75 MG (DAILY), ORAL
     Route: 048
     Dates: start: 20030101, end: 20030101
  2. ZOLOFT [Suspect]
     Indication: DEPRESSION
     Dosage: 75 MG (DAILY), ORAL
     Route: 048
     Dates: start: 20030101, end: 20030101
  3. LORATADINE [Concomitant]
  4. RANITIDINE HYDROCHLORIDE [Concomitant]
  5. SALBUTAMOL (SALBUTAMOL) [Concomitant]
  6. PROMETHAZINE HYDROCHLORIDE TAB [Concomitant]

REACTIONS (2)
  - ANXIETY [None]
  - CONVULSION [None]
